FAERS Safety Report 23074688 (Version 1)
Quarter: 2023Q4

REPORT INFORMATION
  Report Type: Spontaneous
  Country: US (occurrence: US)
  Receive Date: 20231017
  Receipt Date: 20231017
  Transmission Date: 20240110
  Serious: Yes (Hospitalization, Other)
  Sender: FDA-Public Use
  Company Number: US-AMNEAL PHARMACEUTICALS-2023-AMRX-03601

PATIENT
  Age: 46 Year
  Sex: Female

DRUGS (2)
  1. WARFARIN SODIUM [Suspect]
     Active Substance: WARFARIN SODIUM
     Indication: Deep vein thrombosis
     Route: 065
  2. WARFARIN SODIUM [Suspect]
     Active Substance: WARFARIN SODIUM
     Indication: Pulmonary embolism

REACTIONS (5)
  - Multiple organ dysfunction syndrome [Unknown]
  - Purpura fulminans [Unknown]
  - Septic shock [Unknown]
  - Splenic abscess [Unknown]
  - Acquired protein S deficiency [Unknown]
